FAERS Safety Report 6331786-7 (Version None)
Quarter: 2009Q3

REPORT INFORMATION
  Report Type: 
  Country: None (occurrence: None)
  Receive Date: 20090826
  Receipt Date: 20090811
  Transmission Date: 20100115
  Serious: Yes (Other)
  Sender: FDA-Public Use
  Company Number: 8050586

PATIENT
  Age: 43 Year
  Sex: Female

DRUGS (1)
  1. KEPPRA [Suspect]
     Dosage: 3000 MG /D

REACTIONS (2)
  - BRAIN NEOPLASM [None]
  - VULVOVAGINAL MYCOTIC INFECTION [None]
